FAERS Safety Report 7460206-4 (Version None)
Quarter: 2011Q2

REPORT INFORMATION
  Report Type: 
  Country: None (occurrence: None)
  Receive Date: 20110505
  Receipt Date: 20110502
  Transmission Date: 20111010
  Serious: Yes (Life-Threatening, Hospitalization, Other)
  Sender: FDA-Public Use
  Company Number: PHHY2011FR37226

PATIENT
  Age: 28 Year
  Sex: Male

DRUGS (1)
  1. LEPONEX [Suspect]
     Dosage: 25 MG, DAILY
     Route: 048

REACTIONS (6)
  - DYSPNOEA [None]
  - CHEST PAIN [None]
  - BEDRIDDEN [None]
  - HYPERVISCOSITY SYNDROME [None]
  - INFLAMMATORY BOWEL DISEASE [None]
  - PULMONARY EMBOLISM [None]
